FAERS Safety Report 8235676-4 (Version None)
Quarter: 2012Q1

REPORT INFORMATION
  Report Type: 
  Country: None (occurrence: None)
  Receive Date: 20120326
  Receipt Date: 20120316
  Transmission Date: 20120608
  Serious: Yes (Hospitalization, Other)
  Sender: FDA-Public Use
  Company Number: US-MILLENNIUM PHARMACEUTICALS, INC.-2012-01930

PATIENT
  Sex: Male
  Weight: 73.741 kg

DRUGS (4)
  1. VELCADE [Suspect]
     Dosage: 1.0 MG/M2, CYCLIC
     Route: 042
     Dates: start: 20100611, end: 20100704
  2. VELCADE [Suspect]
     Indication: AMYLOIDOSIS
     Dosage: 1.3 MG/M2, CYCLIC
     Route: 042
     Dates: start: 20100427
  3. DEXAMETHASONE [Suspect]
     Indication: AMYLOIDOSIS
  4. MELPHALAN HYDROCHLORIDE [Suspect]
     Indication: AMYLOIDOSIS

REACTIONS (2)
  - POST TRANSPLANT LYMPHOPROLIFERATIVE DISORDER [None]
  - GRAFT VERSUS HOST DISEASE [None]
